FAERS Safety Report 9376108 (Version 2)
Quarter: 2013Q3

REPORT INFORMATION
  Report Type: Report from Study
  Country: GB (occurrence: GB)
  Receive Date: 20130701
  Receipt Date: 20130807
  Transmission Date: 20140515
  Serious: Yes (Death)
  Sender: FDA-Public Use
  Company Number: GB-ROCHE-1242374

PATIENT
  Sex: Female

DRUGS (4)
  1. RITUXIMAB [Suspect]
     Indication: RHEUMATOID ARTHRITIS
     Dosage: DATE OF LAST DOSE PRIOR TO SAE:01/AUG/2009
     Route: 065
     Dates: start: 20090717
  2. TOCILIZUMAB [Suspect]
     Indication: PRODUCT USED FOR UNKNOWN INDICATION
     Route: 065
     Dates: start: 201102
  3. METHOTREXATE [Concomitant]
     Route: 065
     Dates: start: 2004
  4. LEFLUNOMIDE [Concomitant]
     Route: 065
     Dates: start: 20081022

REACTIONS (2)
  - Metastases to liver [Fatal]
  - Anal squamous cell carcinoma [Fatal]
